FAERS Safety Report 15434948 (Version 1)
Quarter: 2018Q3

REPORT INFORMATION
  Report Type: Spontaneous
  Country: US (occurrence: US)
  Receive Date: 20180927
  Receipt Date: 20180927
  Transmission Date: 20181010
  Serious: No
  Sender: FDA-Public Use
  Company Number: US-009507513-1809USA010553

PATIENT
  Age: 60 Year
  Sex: Male

DRUGS (1)
  1. CUBICIN [Suspect]
     Active Substance: DAPTOMYCIN
     Dosage: 4 G, UNK
     Route: 017

REACTIONS (2)
  - Product use in unapproved indication [Unknown]
  - Product use issue [Unknown]
